FAERS Safety Report 21375999 (Version 2)
Quarter: 2022Q3

REPORT INFORMATION
  Report Type: Spontaneous
  Country: US (occurrence: US)
  Receive Date: 20220926
  Receipt Date: 20220927
  Transmission Date: 20221026
  Serious: No
  Sender: FDA-Public Use
  Company Number: US-BRISTOL-MYERS SQUIBB COMPANY-2022-103632

PATIENT
  Age: 63 Year
  Sex: Female

DRUGS (2)
  1. CAMZYOS [Suspect]
     Active Substance: MAVACAMTEN
     Indication: Product used for unknown indication
     Dosage: DOSE : 2.5MG (CURRENT)/5MG (NEW DOSE);     FREQ : QD
     Route: 048
     Dates: start: 2022
  2. CAMZYOS [Suspect]
     Active Substance: MAVACAMTEN
     Route: 048
     Dates: start: 2022

REACTIONS (1)
  - Nasopharyngitis [Unknown]
